FAERS Safety Report 8004464-6 (Version None)
Quarter: 2011Q4

REPORT INFORMATION
  Report Type: 
  Country: None (occurrence: None)
  Receive Date: 20111221
  Receipt Date: 20111221
  Transmission Date: 20120403
  Serious: Yes (Other)
  Sender: FDA-Public Use
  Company Number: None

PATIENT
  Sex: Female
  Weight: 63.5036 kg

DRUGS (2)
  1. AGE LOC VITALITY PHARMANEX NUSKIN [Suspect]
     Dosage: 3 CAPSULES TWICE DAILY MORNING/EVENING
     Dates: start: 20110101, end: 20111001
  2. LIFEPAK NANO PHARMANEX [Suspect]
     Dosage: 1 PACKETS TWICE DAILY MORNING/EVENING
     Dates: start: 20110101, end: 20111001

REACTIONS (6)
  - FEELING ABNORMAL [None]
  - OCCULT BLOOD POSITIVE [None]
  - MULTI-ORGAN DISORDER [None]
  - DYSPEPSIA [None]
  - BLOOD IRON INCREASED [None]
  - MELAENA [None]
